FAERS Safety Report 22038290 (Version 1)
Quarter: 2023Q1

REPORT INFORMATION
  Report Type: Spontaneous
  Country: CN (occurrence: CN)
  Receive Date: 20230227
  Receipt Date: 20230227
  Transmission Date: 20230417
  Serious: Yes (Hospitalization, Other)
  Sender: FDA-Public Use
  Company Number: CN-SA-SAC20230224000155

PATIENT
  Age: 53 Year
  Sex: Male
  Weight: 65 kg

DRUGS (7)
  1. ELOXATIN [Suspect]
     Active Substance: OXALIPLATIN
     Indication: Rectal cancer
     Dosage: 160 MG, QD
     Route: 041
     Dates: start: 20230130, end: 20230130
  2. FLUOROURACIL [Suspect]
     Active Substance: FLUOROURACIL
     Indication: Rectal cancer
     Dosage: 0.75G QD
     Route: 042
     Dates: start: 20230130, end: 20230130
  3. FLUOROURACIL [Suspect]
     Active Substance: FLUOROURACIL
     Dosage: 4.75G QD
     Route: 042
     Dates: start: 20230130, end: 20230130
  4. LEUCOVORIN CALCIUM [Concomitant]
     Active Substance: LEUCOVORIN CALCIUM
     Dosage: 750 MG
     Route: 041
     Dates: start: 20230130
  5. DEXTROSE [Concomitant]
     Active Substance: DEXTROSE
     Indication: Vehicle solution use
     Dosage: 500 ML QD
     Route: 041
     Dates: start: 20230130, end: 20230130
  6. DEXTROSE [Concomitant]
     Active Substance: DEXTROSE
     Dosage: 110 ML QD
     Dates: start: 20230130, end: 20230130
  7. DEXTROSE [Concomitant]
     Active Substance: DEXTROSE
     Dosage: 50 ML, QD
     Route: 041
     Dates: start: 20230130, end: 20230130

REACTIONS (5)
  - Cerebral infarction [Recovering/Resolving]
  - Central nervous system lesion [Recovering/Resolving]
  - Pruritus [Recovering/Resolving]
  - Hypoaesthesia oral [Recovering/Resolving]
  - Paraesthesia [Recovering/Resolving]

NARRATIVE: CASE EVENT DATE: 20230211
